FAERS Safety Report 20850620 (Version 7)
Quarter: 2022Q4

REPORT INFORMATION
  Report Type: Spontaneous
  Country: US (occurrence: US)
  Receive Date: 20220519
  Receipt Date: 20221021
  Transmission Date: 20230113
  Serious: No
  Sender: FDA-Public Use
  Company Number: US-PFIZER INC-202200702724

PATIENT
  Age: 84 Year
  Sex: Female

DRUGS (3)
  1. IBRANCE [Suspect]
     Active Substance: PALBOCICLIB
     Dosage: UNK
     Dates: start: 20220508
  2. IBRANCE [Suspect]
     Active Substance: PALBOCICLIB
     Dosage: UNK
     Dates: start: 20221009
  3. FLU [INFLUENZA VACCINE] [Concomitant]
     Dosage: UNK, SINGLE
     Dates: start: 20221014, end: 20221014

REACTIONS (5)
  - Fatigue [Recovered/Resolved]
  - Epistaxis [Recovered/Resolved]
  - White blood cell count decreased [Unknown]
  - Nasal dryness [Unknown]
  - Pain in extremity [Recovered/Resolved]

NARRATIVE: CASE EVENT DATE: 20220101
